FAERS Safety Report 7723378-X (Version None)
Quarter: 2011Q3

REPORT INFORMATION
  Report Type: 
  Country: None (occurrence: None)
  Receive Date: 20110826
  Receipt Date: 20110814
  Transmission Date: 20111222
  Serious: Yes (Life-Threatening, Hospitalization)
  Sender: FDA-Public Use
  Company Number: 1000021444

PATIENT
  Age: 73 Year
  Sex: Female

DRUGS (8)
  1. NUX VOMICA (NUX VOMICA HOMACCORD) [Suspect]
     Dates: start: 20110517
  2. HOMEOPATHIC MEDICATION (HOMEOPATHIC MEDICATION) (HOMEPATHIC MEDICATION [Concomitant]
  3. HYDROCHLOROTHIAZIDE (HYDROCHLOROTHIAZIDE) (25 MILLIGRAM) (HYDROCHLOROT [Concomitant]
  4. ROFLUMILAST (ROFLUMILAST) (TABLETS) [Suspect]
     Indication: CHRONIC OBSTRUCTIVE PULMONARY DISEASE
     Dosage: 1 DF (1 DOSAGE FORMS,1 IN 1 D),ORAL
     Route: 048
     Dates: start: 20110225, end: 20110517
  5. ESOMEPRAZOLE (ESOMEPRAZOLE) (ESOMEPRAZOLE) [Concomitant]
  6. ATAMADISC MITE (FLUITCASONE, SALMETEROL) (FLUTICASONE, SALMETEROL) [Concomitant]
  7. LISINOPRIL (LISINOPRIL) (5 MILLIGRAM) (LISINOPRIL) [Concomitant]
  8. SPIRIVA (TIOTROPIUM BROMIDE) (18 MICROGRAM) (TIOTROPIUM BROMIDE) [Concomitant]

REACTIONS (1)
  - ANGIOEDEMA [None]
